FAERS Safety Report 8370627-3 (Version None)
Quarter: 2012Q2

REPORT INFORMATION
  Report Type: 
  Country: None (occurrence: None)
  Receive Date: 20120518
  Receipt Date: 20120514
  Transmission Date: 20120825
  Serious: Yes (Other)
  Sender: FDA-Public Use
  Company Number: US-ELI_LILLY_AND_COMPANY-US201203005472

PATIENT
  Age: 79 Year
  Sex: Female

DRUGS (3)
  1. AVANDIA [Concomitant]
  2. HUMULIN N [Suspect]
     Indication: DIABETES MELLITUS
     Dosage: 3 U, EACH EVENING
     Dates: start: 20120301
  3. ACTOS [Concomitant]

REACTIONS (4)
  - VISUAL ACUITY REDUCED [None]
  - RENAL FAILURE [None]
  - DRUG DOSE OMISSION [None]
  - VIITH NERVE PARALYSIS [None]
